FAERS Safety Report 7700125-9 (Version None)
Quarter: 2011Q3

REPORT INFORMATION
  Report Type: 
  Country: None (occurrence: None)
  Receive Date: 20110822
  Receipt Date: 20110817
  Transmission Date: 20111222
  Serious: Yes (Other)
  Sender: FDA-Public Use
  Company Number: US-PFIZER INC-2011190730

PATIENT
  Sex: Female

DRUGS (2)
  1. CHANTIX [Suspect]
     Dosage: 1 MG, 2X/DAY
     Dates: start: 20110801
  2. CHANTIX [Suspect]
     Dosage: UNK
     Dates: start: 20110801, end: 20110801

REACTIONS (2)
  - RASH MACULAR [None]
  - DEPRESSION [None]
